FAERS Safety Report 18464174 (Version 1)
Quarter: 2020Q4

REPORT INFORMATION
  Report Type: Report from Study
  Country: ES (occurrence: ES)
  Receive Date: 20201104
  Receipt Date: 20201104
  Transmission Date: 20210114
  Serious: Yes (Other)
  Sender: FDA-Public Use
  Company Number: ES-JAZZ-2020-ES-004857

PATIENT
  Age: 6 Year

DRUGS (1)
  1. DEFITELIO [Suspect]
     Active Substance: DEFIBROTIDE SODIUM
     Indication: VENOOCCLUSIVE DISEASE
     Dosage: UNKNOWN DOSAGE
     Dates: start: 20100906, end: 20101016

REACTIONS (3)
  - Condition aggravated [Unknown]
  - Off label use [Unknown]
  - Venoocclusive disease [Unknown]

NARRATIVE: CASE EVENT DATE: 20100906
